FAERS Safety Report 11827360 (Version 3)
Quarter: 2016Q1

REPORT INFORMATION
  Report Type: Report from Study
  Country: US (occurrence: US)
  Receive Date: 20151211
  Receipt Date: 20160204
  Transmission Date: 20160525
  Serious: Yes (Death)
  Sender: FDA-Public Use
  Company Number: US-B.I. PHARMACEUTICALS,INC./RIDGEFIELD-2015-BI-54117BP

PATIENT
  Sex: Male

DRUGS (1)
  1. OFEV [Suspect]
     Active Substance: NINTEDANIB
     Indication: IDIOPATHIC PULMONARY FIBROSIS
     Dosage: 300 MG
     Route: 048
     Dates: start: 20150728, end: 201511

REACTIONS (6)
  - Nausea [Unknown]
  - Dyspnoea [Unknown]
  - Idiopathic pulmonary fibrosis [Fatal]
  - Malaise [Unknown]
  - Pigmentation disorder [Unknown]
  - Diarrhoea [Unknown]
